FAERS Safety Report 4703276-6 (Version None)
Quarter: 2005Q2

REPORT INFORMATION
  Report Type: 
  Country: None (occurrence: None)
  Receive Date: 20050629
  Receipt Date: 20011025
  Transmission Date: 20051028
  Serious: Yes (Hospitalization, Disabling)
  Sender: FDA-Public Use
  Company Number: US-MERCK-01104510

PATIENT
  Age: 64 Year
  Sex: Male
  Weight: 89 kg

DRUGS (16)
  1. VIOXX [Suspect]
     Indication: OSTEOARTHRITIS
     Route: 048
     Dates: start: 20000524, end: 20000619
  2. VIOXX [Suspect]
     Route: 048
     Dates: start: 20000701, end: 20001107
  3. PREVACID [Concomitant]
     Indication: GASTRIC DISORDER
     Route: 065
  4. LIPITOR [Concomitant]
     Indication: LIPIDS ABNORMAL
     Route: 065
     Dates: end: 20040614
  5. VASERETIC [Concomitant]
     Indication: BLOOD PRESSURE
     Route: 048
     Dates: end: 20001107
  6. VASERETIC [Concomitant]
     Route: 048
     Dates: start: 19991201, end: 20000701
  7. NEURONTIN [Concomitant]
     Indication: NEUROPATHY
     Route: 065
  8. INDERAL [Concomitant]
     Indication: BLOOD PRESSURE ABNORMAL
     Route: 065
     Dates: start: 19990101
  9. ASPIRIN [Concomitant]
     Route: 065
  10. CENTRUM [Concomitant]
     Route: 065
     Dates: start: 19900101
  11. CHONDROITIN SULFATE SODIUM AND GLUCOSAMINE HYDROCHLORIDE [Concomitant]
     Route: 065
     Dates: start: 20000101, end: 20000601
  12. [THERAPY UNSPECIFIED] [Concomitant]
     Route: 065
  13. [THERAPY UNSPECIFIED] [Concomitant]
     Route: 065
  14. PEPTO-BISMOL [Concomitant]
     Route: 065
     Dates: start: 20001102
  15. VITAMIN E [Concomitant]
     Route: 065
     Dates: start: 19850101
  16. VITAMIN B (UNSPECIFIED) [Concomitant]
     Route: 065
     Dates: start: 19850101

REACTIONS (20)
  - ANAEMIA OF CHRONIC DISEASE [None]
  - BLOOD CALCIUM INCREASED [None]
  - CAROTID ARTERY DISEASE [None]
  - COLITIS [None]
  - CORONARY ARTERY DISEASE [None]
  - ECZEMA [None]
  - GASTRIC ULCER HAEMORRHAGE [None]
  - GASTRITIS [None]
  - HELICOBACTER PYLORI IDENTIFICATION TEST POSITIVE [None]
  - IMPAIRED FASTING GLUCOSE [None]
  - INFECTION [None]
  - INTERMITTENT CLAUDICATION [None]
  - JOINT SPRAIN [None]
  - MYOCARDIAL INFARCTION [None]
  - OESOPHAGITIS [None]
  - PERIPHERAL VASCULAR DISORDER [None]
  - RENAL FAILURE CHRONIC [None]
  - STRESS [None]
  - TACHYCARDIA [None]
  - VENTRICULAR ARRHYTHMIA [None]
